FAERS Safety Report 8905608 (Version 2)
Quarter: 2012Q4

REPORT INFORMATION
  Report Type: 
  Country: US (occurrence: US)
  Receive Date: 20121113
  Receipt Date: 20121210
  Transmission Date: 20130627
  Serious: Yes (Hospitalization)
  Sender: FDA-Public Use
  Company Number: US-MERCK-1211USA004441

PATIENT
  Age: 89 Year
  Sex: Male

DRUGS (6)
  1. JANUVIA [Suspect]
     Indication: DIABETES MELLITUS
     Dosage: 100 mg, qd
     Route: 048
     Dates: start: 200505, end: 20121102
  2. LISINOPRIL [Concomitant]
  3. PROCARDIA [Concomitant]
  4. ASMANEX TWISTHALER [Concomitant]
  5. SPIRIVA [Concomitant]
  6. OXYGEN [Concomitant]

REACTIONS (8)
  - Colon injury [Unknown]
  - Colitis ischaemic [Unknown]
  - Diarrhoea haemorrhagic [Unknown]
  - Asthenia [Not Recovered/Not Resolved]
  - Nausea [Not Recovered/Not Resolved]
  - Dizziness [Not Recovered/Not Resolved]
  - Nasal congestion [Not Recovered/Not Resolved]
  - Prostatic specific antigen increased [Unknown]
